FAERS Safety Report 7423936-6 (Version None)
Quarter: 2011Q2

REPORT INFORMATION
  Report Type: 
  Country: None (occurrence: None)
  Receive Date: 20110419
  Receipt Date: 20110411
  Transmission Date: 20111010
  Serious: Yes (Other)
  Sender: FDA-Public Use
  Company Number: A0904947A

PATIENT
  Age: 68 Year
  Sex: Female

DRUGS (14)
  1. CLARITIN-D [Concomitant]
  2. BUSPIRONE HCL [Concomitant]
  3. SINGULAIR [Concomitant]
  4. OXYCODONE HCL AND ACETAMINOPHEN [Concomitant]
  5. ADVAIR HFA [Suspect]
     Indication: ASTHMA
     Route: 055
  6. DILTIAZEM [Concomitant]
  7. POTASSIUM [Concomitant]
  8. FUROSEMIDE [Concomitant]
  9. PRILOSEC [Concomitant]
  10. FERROUS SULFATE TAB [Concomitant]
  11. LISINOPRIL [Concomitant]
  12. PROBENECID [Concomitant]
  13. AZELASTINE HCL [Concomitant]
  14. COMBIVENT [Concomitant]

REACTIONS (4)
  - ASTHMA [None]
  - DYSPNOEA [None]
  - WHEEZING [None]
  - PRODUCT QUALITY ISSUE [None]
